FAERS Safety Report 9410979 (Version 1)
Quarter: 2013Q3

REPORT INFORMATION
  Report Type: Spontaneous
  Country: BR (occurrence: BR)
  Receive Date: 20130719
  Receipt Date: 20130719
  Transmission Date: 20140515
  Serious: Yes (Hospitalization)
  Sender: FDA-Public Use
  Company Number: BR-B.I. PHARMACEUTICALS,INC./RIDGEFIELD-2013-BR-00775BR

PATIENT
  Age: 78 Year
  Sex: Female

DRUGS (6)
  1. ATENSINA [Suspect]
     Indication: HYPERTENSION
     Dosage: 0.4 MG
     Route: 048
     Dates: start: 2005
  2. TENADREN [Concomitant]
     Indication: HYPERTENSION
  3. ALPRAZOLAM [Concomitant]
     Indication: DEPRESSION
  4. ACETYLSALICYLIC ACID [Concomitant]
     Indication: ANGIOPLASTY
  5. SIMVASTATINA [Concomitant]
     Indication: BLOOD CHOLESTEROL
  6. JANUMET [Concomitant]
     Indication: DIABETES MELLITUS
     Route: 048
     Dates: start: 2008

REACTIONS (3)
  - Arterial occlusive disease [Recovered/Resolved]
  - Drug ineffective [Not Recovered/Not Resolved]
  - Blood pressure increased [Not Recovered/Not Resolved]
